FAERS Safety Report 24049009 (Version 2)
Quarter: 2024Q3

REPORT INFORMATION
  Report Type: Spontaneous
  Country: DE (occurrence: DE)
  Receive Date: 20240704
  Receipt Date: 20240718
  Transmission Date: 20241017
  Serious: Yes (Hospitalization, Other)
  Sender: Haleon PLC
  Company Number: DE-002147023-PHHY2011DE17401

PATIENT
  Age: 17 Year
  Sex: Male
  Weight: 68 kg

DRUGS (7)
  1. VOLTAREN [Suspect]
     Active Substance: DICLOFENAC SODIUM
     Indication: Femur fracture
     Dosage: TIME INTERVAL: 0.33333333 DAYS: DURATION 21 DAYS
     Route: 065
  2. VOLTAREN [Suspect]
     Active Substance: DICLOFENAC SODIUM
     Indication: Procedural pain
  3. PANTOPRAZOLE [Concomitant]
     Active Substance: PANTOPRAZOLE
     Indication: Product used for unknown indication
     Dosage: 20 MG, UNK
     Route: 065
  4. NOVALGIN (METAMIZOLE SODIUM) [Suspect]
     Active Substance: METAMIZOLE SODIUM
     Indication: Femur fracture
     Dosage: 4 X 30 DROPS
     Route: 065
  5. NALOXONE [Suspect]
     Active Substance: NALOXONE
     Indication: Femur fracture
     Route: 065
  6. METAMIZOLE [Suspect]
     Active Substance: METAMIZOLE
     Indication: Femur fracture
     Route: 065
  7. METAMIZOLE [Suspect]
     Active Substance: METAMIZOLE
     Indication: Procedural pain

REACTIONS (10)
  - Agranulocytosis [Recovered/Resolved]
  - Splenomegaly [Unknown]
  - Fatigue [Recovering/Resolving]
  - Odynophagia [Recovered/Resolved]
  - Gamma-glutamyltransferase increased [Unknown]
  - Dysphagia [Recovering/Resolving]
  - Chills [Recovered/Resolved]
  - Pyrexia [Recovered/Resolved]
  - Alanine aminotransferase increased [Unknown]
  - Neutropenia [Recovered/Resolved]
